FAERS Safety Report 24236986 (Version 2)
Quarter: 2024Q3

REPORT INFORMATION
  Report Type: Spontaneous
  Country: CA (occurrence: CA)
  Receive Date: 20240822
  Receipt Date: 20240830
  Transmission Date: 20241017
  Serious: Yes (Life-Threatening)
  Sender: CSL BEHRING
  Company Number: CA-BEH-2024177200

PATIENT
  Age: 78 Year
  Sex: Male

DRUGS (2)
  1. PRIVIGEN [Suspect]
     Active Substance: HUMAN IMMUNOGLOBULIN G
     Dosage: 380 ML, FRACTION: THREE QUARTERS
     Route: 042
     Dates: start: 20240729, end: 20240729
  2. PRIVIGEN [Suspect]
     Active Substance: HUMAN IMMUNOGLOBULIN G
     Dosage: 40 G
     Route: 065

REACTIONS (12)
  - Allergic transfusion reaction [Unknown]
  - Tetany [Unknown]
  - Urticaria [Unknown]
  - Lip oedema [Unknown]
  - Conjunctival oedema [Unknown]
  - Tongue oedema [Unknown]
  - Muscle twitching [Unknown]
  - Muscle spasms [Unknown]
  - Pruritus [Unknown]
  - Swelling [Unknown]
  - Angioedema [Unknown]
  - Feeling jittery [Unknown]

NARRATIVE: CASE EVENT DATE: 20240729
